FAERS Safety Report 4487084-X (Version None)
Quarter: 2004Q3

REPORT INFORMATION
  Report Type: 
  Country: None (occurrence: None)
  Receive Date: 20040921
  Receipt Date: 20040330
  Transmission Date: 20050211
  Serious: Yes (Hospitalization, Other)
  Sender: FDA-Public Use
  Company Number: 163-20785-04040008

PATIENT
  Age: 72 Year
  Sex: Female
  Weight: 91.4 kg

DRUGS (20)
  1. THALOMID [Suspect]
     Indication: GLIOBLASTOMA MULTIFORME
     Dosage: SEE IMAGE
     Route: 048
     Dates: start: 20040301, end: 20040301
  2. THALOMID [Suspect]
     Indication: GLIOBLASTOMA MULTIFORME
     Dosage: SEE IMAGE
     Route: 048
     Dates: start: 20040205, end: 20040317
  3. IRINOTECAN (IRINOTECAN) (SOLUTION) [Suspect]
     Indication: GLIOBLASTOMA MULTIFORME
     Dosage: 350 MG/M2, EVERY 3 WEEKS, INTRAVENOUS
     Route: 042
     Dates: start: 20040205, end: 20040301
  4. RADIOTHERAPY [Suspect]
     Indication: GLIOBLASTOMA MULTIFORME
  5. LOVENOX (HEPARIN F-RACTION, SOPDIUM SALT) (INJECTION) [Concomitant]
  6. LASIX [Concomitant]
  7. CIPROFLOXAMIN (CIPROFLOXAMIN) (TABLETS) [Concomitant]
  8. LOPERAMIDE HYDROCHLORIDE (LOPERAMIDE HYDROCHLORIDE) (TABLETS) [Concomitant]
  9. GARLIC (GARLIC) (CAPSULES) [Concomitant]
  10. ECHINACEA (CAPSULES) [Concomitant]
  11. FLAXSEED OIL (LINSEED OIL) (CAPSULES) [Concomitant]
  12. COD-LIVER OIL (COD-LIVER OIL) [Concomitant]
  13. POTASSIUM CHLORIDE [Concomitant]
  14. SELENIUM (SELENIUM) [Concomitant]
  15. ZINC (ZINC) [Concomitant]
  16. MULTIVITAMIN [Concomitant]
  17. MINERAL [Concomitant]
  18. VITAMIN E [Concomitant]
  19. HYDROCHLOROTHIAZIDE [Concomitant]
  20. DEXAMETHASONE [Concomitant]

REACTIONS (5)
  - BLOOD POTASSIUM DECREASED [None]
  - DEEP VEIN THROMBOSIS [None]
  - DEHYDRATION [None]
  - DIARRHOEA [None]
  - PAIN [None]
